FAERS Safety Report 9972440 (Version 1)
Quarter: 2014Q1

REPORT INFORMATION
  Report Type: Report from Study
  Country: US (occurrence: US)
  Receive Date: 20140306
  Receipt Date: 20140306
  Transmission Date: 20141002
  Serious: No
  Sender: FDA-Public Use
  Company Number: US-ABBVIE-13P-163-1153916-00

PATIENT
  Age: 23 Year
  Sex: Male
  Weight: 59.02 kg

DRUGS (5)
  1. HUMIRA [Suspect]
     Indication: CROHN^S DISEASE
     Dosage: STARTING DOSE
     Dates: start: 201306, end: 201306
  2. HUMIRA [Suspect]
     Dosage: ON DAY 15
     Dates: start: 2013, end: 2013
  3. HUMIRA [Suspect]
     Dates: start: 2013
  4. PROZAC [Concomitant]
     Indication: DEPRESSION
  5. ADDERALL [Concomitant]
     Indication: DISTURBANCE IN ATTENTION

REACTIONS (1)
  - Arthralgia [Not Recovered/Not Resolved]
